FAERS Safety Report 19420336 (Version 1)
Quarter: 2021Q2

REPORT INFORMATION
  Report Type: Spontaneous
  Country: GB (occurrence: GB)
  Receive Date: 20210615
  Receipt Date: 20210615
  Transmission Date: 20210717
  Serious: Yes (Other)
  Sender: FDA-Public Use
  Company Number: GB-GLAXOSMITHKLINE-GBCH2021037638

PATIENT
  Age: 68 Year
  Sex: Female
  Weight: 62 kg

DRUGS (3)
  1. PARACETAMOL [Concomitant]
     Active Substance: ACETAMINOPHEN
     Indication: HEADACHE
     Dosage: UNK
     Route: 065
     Dates: start: 20210207, end: 20210209
  2. IBUPROFEN. [Suspect]
     Active Substance: IBUPROFEN
     Indication: PRODUCT USED FOR UNKNOWN INDICATION
     Dosage: UNK
     Route: 065
  3. ASTRAZENECA COVID?19 VACCINE [Suspect]
     Active Substance: AZD-1222
     Indication: PRODUCT USED FOR UNKNOWN INDICATION
     Dosage: UNK, (DOSE 1)
     Route: 065
     Dates: start: 20210206

REACTIONS (3)
  - Fatigue [Recovered/Resolved]
  - Headache [Recovered/Resolved]
  - Arthralgia [Recovered/Resolved]

NARRATIVE: CASE EVENT DATE: 20210207
